FAERS Safety Report 9471695 (Version 1)
Quarter: 2013Q3

REPORT INFORMATION
  Report Type: Spontaneous
  Country: JP (occurrence: None)
  Receive Date: 20130819
  Receipt Date: 20130819
  Transmission Date: 20140515
  Serious: Yes (Other)
  Sender: FDA-Public Use
  Company Number: JP-012626

PATIENT
  Sex: Male

DRUGS (2)
  1. DEGARELIX (GONAX) [Suspect]
     Indication: PRODUCT USED FOR UNKNOWN INDICATION
  2. ANTIHYPERTENSIVIES [Concomitant]

REACTIONS (1)
  - Blood potassium decreased [None]
